FAERS Safety Report 4653360-0 (Version None)
Quarter: 2005Q2

REPORT INFORMATION
  Report Type: 
  Country: None (occurrence: None)
  Receive Date: 20050504
  Receipt Date: 20050504
  Transmission Date: 20051028
  Serious: Yes (Hospitalization)
  Sender: FDA-Public Use
  Company Number: None

PATIENT
  Age: 50 Year
  Sex: Female
  Weight: 79.5 kg

DRUGS (10)
  1. EPTIFIBATIDE (INTEGRILEN(R) [Suspect]
     Indication: ANTIPLATELET THERAPY
     Dosage: 2 (7.3 ML BOLUSES) / 13 ML/HR IV
     Route: 040
     Dates: start: 20050425, end: 20050426
  2. FENTANYL [Concomitant]
  3. MORPHINE [Concomitant]
  4. MIDAZOLAM [Concomitant]
  5. NITROGLYCERIN [Concomitant]
  6. CLOPIDOGREL BISULFATE [Concomitant]
  7. ASPIRIN [Concomitant]
  8. ZETIA [Concomitant]
  9. LEXAPRO [Concomitant]
  10. TOPROL-XL [Concomitant]

REACTIONS (5)
  - CARDIAC ENZYMES INCREASED [None]
  - NAUSEA [None]
  - PUNCTURE SITE REACTION [None]
  - VOMITING [None]
  - WOUND SECRETION [None]
